FAERS Safety Report 23765416 (Version 3)
Quarter: 2025Q1

REPORT INFORMATION
  Report Type: Spontaneous
  Country: US (occurrence: US)
  Receive Date: 20240420
  Receipt Date: 20250321
  Transmission Date: 20250409
  Serious: Yes (Other)
  Sender: SANOFI AVENTIS
  Company Number: US-SANOFI-02019149

PATIENT
  Age: 67 Year
  Sex: Female

DRUGS (4)
  1. TOUJEO MAX [Suspect]
     Active Substance: INSULIN GLARGINE
     Indication: Diabetes mellitus
     Dosage: 34 IU, QD
     Route: 065
  2. TOUJEO MAX [Suspect]
     Active Substance: INSULIN GLARGINE
     Indication: Type 2 diabetes mellitus
     Dosage: 38 IU, QD
     Route: 065
  3. TOUJEO MAX [Suspect]
     Active Substance: INSULIN GLARGINE
     Dosage: 23 IU, QD
     Route: 065
  4. TOUJEO MAX [Suspect]
     Active Substance: INSULIN GLARGINE
     Dosage: 38 IU, QD
     Route: 065

REACTIONS (2)
  - Pancreatitis [Unknown]
  - Renal neoplasm [Unknown]
